FAERS Safety Report 20031493 (Version 1)
Quarter: 2021Q4

REPORT INFORMATION
  Report Type: Spontaneous
  Country: SE (occurrence: SE)
  Receive Date: 20211103
  Receipt Date: 20211103
  Transmission Date: 20220303
  Serious: Yes (Life-Threatening, Hospitalization)
  Sender: FDA-Public Use
  Company Number: SE-ABBVIE-21K-150-4141622-00

PATIENT
  Age: 8 Year
  Sex: Male

DRUGS (4)
  1. VALPROIC ACID [Suspect]
     Active Substance: VALPROIC ACID
     Indication: Product used for unknown indication
     Route: 048
     Dates: start: 201711, end: 2017
  2. VALPROIC ACID [Suspect]
     Active Substance: VALPROIC ACID
     Route: 065
     Dates: start: 201712
  3. VALPROIC ACID [Suspect]
     Active Substance: VALPROIC ACID
     Dosage: DOSE OF 250 MG BAGS/SACHET, 1.5 + 2 DAILY
     Route: 065
     Dates: start: 201810, end: 201907
  4. CLONAZEPAM [Suspect]
     Active Substance: CLONAZEPAM
     Indication: Epilepsy
     Dosage: DOSE INCREASED FROM 0.5 TABLET X 1 TO 1.5 TABLET X 3
     Route: 048
     Dates: start: 201802

REACTIONS (2)
  - Obesity [Not Recovered/Not Resolved]
  - Weight increased [Not Recovered/Not Resolved]

NARRATIVE: CASE EVENT DATE: 20181001
